FAERS Safety Report 4645163-8 (Version None)
Quarter: 2005Q2

REPORT INFORMATION
  Report Type: 
  Country: None (occurrence: None)
  Receive Date: 20050331
  Receipt Date: 20041206
  Transmission Date: 20051028
  Serious: No
  Sender: FDA-Public Use
  Company Number: 04P-163-0282504

PATIENT
  Age: 60 Year
  Sex: Female
  Weight: 51.7101 kg

DRUGS (12)
  1. HUMIRA [Suspect]
     Indication: RHEUMATOID ARTHRITIS
     Dosage: 40 MG, 1 IN 2 WK, SUBCUTANEOUS
     Route: 058
     Dates: start: 20040301
  2. BUCINDOLOL HYDROCHLORIDE [Concomitant]
  3. ASPIRIN [Concomitant]
  4. ESTRACE [Concomitant]
  5. METOPROLOL SUCCINATE [Concomitant]
  6. CO-DIOVAN [Concomitant]
  7. QUININE [Concomitant]
  8. AMITRIPTYLINE [Concomitant]
  9. TOCOPHEROL CONCENTRATE CAP [Concomitant]
  10. CALCIUM WITH VITAMIN D [Concomitant]
  11. MULTI-VITAMINS [Concomitant]
  12. ADVAIR DISKUS 100/50 [Concomitant]

REACTIONS (2)
  - INJECTION SITE ERYTHEMA [None]
  - INJECTION SITE PRURITUS [None]
